FAERS Safety Report 13227678 (Version 1)
Quarter: 2017Q1

REPORT INFORMATION
  Report Type: Spontaneous
  Country: AU (occurrence: AU)
  Receive Date: 20170213
  Receipt Date: 20170213
  Transmission Date: 20170428
  Serious: Yes (Other)
  Sender: FDA-Public Use
  Company Number: AU-BAUSCH-BL-2017-003390

PATIENT
  Age: 26 Year
  Sex: Female

DRUGS (5)
  1. VITAMIN D [Concomitant]
     Active Substance: CHOLECALCIFEROL
     Indication: PRODUCT USED FOR UNKNOWN INDICATION
  2. RECTOGESIC [Concomitant]
     Active Substance: NITROGLYCERIN
     Indication: PRODUCT USED FOR UNKNOWN INDICATION
  3. FEMME [Concomitant]
     Indication: PRODUCT USED FOR UNKNOWN INDICATION
     Dosage: TAB ED 20/100
  4. METRONIDAZOLE. [Suspect]
     Active Substance: METRONIDAZOLE
     Indication: PRODUCT USED FOR UNKNOWN INDICATION
     Route: 065
  5. GINSENG [Concomitant]
     Active Substance: ASIAN GINSENG
     Indication: PRODUCT USED FOR UNKNOWN INDICATION

REACTIONS (12)
  - Eructation [Unknown]
  - Confusional state [Unknown]
  - Depressed mood [Unknown]
  - Intentional self-injury [Unknown]
  - Disorientation [Unknown]
  - Headache [Unknown]
  - Irritability [Unknown]
  - Decreased appetite [Unknown]
  - Fatigue [Unknown]
  - Suicidal ideation [Unknown]
  - Ear discomfort [Unknown]
  - Delusion [Unknown]
